FAERS Safety Report 20175483 (Version 1)
Quarter: 2021Q4

REPORT INFORMATION
  Report Type: Spontaneous
  Country: US (occurrence: None)
  Receive Date: 20211209
  Receipt Date: 20211209
  Transmission Date: 20220303
  Serious: Yes (Other)
  Sender: FDA-Public Use
  Company Number: None

PATIENT
  Age: 53 Year
  Sex: Male
  Weight: 140 kg

DRUGS (1)
  1. REZUROCK [Suspect]
     Active Substance: BELUMOSUDIL
     Indication: Graft versus host disease
     Dosage: FREQUENCY : TWICE A DAY;?
     Route: 048
     Dates: start: 20211104, end: 20211125

REACTIONS (1)
  - Intraocular pressure increased [None]

NARRATIVE: CASE EVENT DATE: 20211125
